FAERS Safety Report 7318401-0 (Version None)
Quarter: 2011Q1

REPORT INFORMATION
  Report Type: 
  Country: None (occurrence: None)
  Receive Date: 20110223
  Receipt Date: 20110223
  Transmission Date: 20110831
  Serious: No
  Sender: FDA-Public Use
  Company Number: None

PATIENT
  Age: 31 Year
  Sex: Male

DRUGS (1)
  1. DICLOFENAC SODIUM [Suspect]
     Dates: start: 20081024, end: 20081028

REACTIONS (5)
  - COAGULOPATHY [None]
  - CHOLESTASIS [None]
  - PHARYNGITIS [None]
  - HEPATITIS ACUTE [None]
  - LIVER DISORDER [None]
